FAERS Safety Report 7531532-5 (Version None)
Quarter: 2011Q2

REPORT INFORMATION
  Report Type: 
  Country: None (occurrence: None)
  Receive Date: 20110606
  Receipt Date: 20110606
  Transmission Date: 20111010
  Serious: Yes (Hospitalization)
  Sender: FDA-Public Use
  Company Number: None

PATIENT
  Age: 78 Year
  Sex: Female

DRUGS (2)
  1. LEVOFLOXACIN [Suspect]
     Indication: INFECTION
     Dosage: 250MG QDAY IV
     Route: 042
  2. VANCOMYCIN [Suspect]
     Indication: INFECTION
     Dosage: 1 GM X1 IV 1X
     Route: 042

REACTIONS (1)
  - THROMBOCYTOPENIA [None]
